FAERS Safety Report 24755895 (Version 2)
Quarter: 2025Q1

REPORT INFORMATION
  Report Type: Report from Study
  Country: US (occurrence: US)
  Receive Date: 20241219
  Receipt Date: 20250101
  Transmission Date: 20250409
  Serious: Yes (Other)
  Sender: AIMMUNE
  Company Number: US-AIMMUNE THERAPEUTICS, INC.-2024AIMT01668

PATIENT

DRUGS (3)
  1. VOWST [Suspect]
     Active Substance: DONOR HUMAN STOOL SPORES (ETHANOL TREATED)
     Indication: Clostridium difficile infection
     Route: 048
     Dates: start: 20241109, end: 20241111
  2. VOWST [Suspect]
     Active Substance: DONOR HUMAN STOOL SPORES (ETHANOL TREATED)
     Route: 048
     Dates: start: 20241109, end: 20241109
  3. VANCOMYCIN [Concomitant]
     Active Substance: VANCOMYCIN
     Indication: Product used for unknown indication

REACTIONS (3)
  - Clostridium difficile infection [Unknown]
  - Clostridium test positive [Unknown]
  - Diarrhoea [Unknown]

NARRATIVE: CASE EVENT DATE: 20241109
